FAERS Safety Report 19103337 (Version 1)
Quarter: 2021Q2

REPORT INFORMATION
  Report Type: Spontaneous
  Country: CA (occurrence: CA)
  Receive Date: 20210407
  Receipt Date: 20210407
  Transmission Date: 20210717
  Serious: Yes (Hospitalization)
  Sender: FDA-Public Use
  Company Number: NVSC2021CA075620

PATIENT
  Age: 63 Year
  Sex: Female

DRUGS (3)
  1. SANDOZ CARBAMAZEPINE CR [Suspect]
     Active Substance: CARBAMAZEPINE
     Indication: PRODUCT USED FOR UNKNOWN INDICATION
     Dosage: THERAPY DURATION: 40 DAYS (EXTENDED RELEASE)
     Route: 065
  2. BASAGLAR [Concomitant]
     Active Substance: INSULIN GLARGINE
     Indication: PRODUCT USED FOR UNKNOWN INDICATION
     Dosage: KWIKPEN, DELIVERS UPTO 80 UNITS PER INJECTION
     Route: 058
  3. HUMALOG [Concomitant]
     Active Substance: INSULIN LISPRO
     Indication: PRODUCT USED FOR UNKNOWN INDICATION
     Dosage: UNK
     Route: 065

REACTIONS (8)
  - Diabetic ketoacidosis [Unknown]
  - Tachycardia [Unknown]
  - Hypotension [Unknown]
  - Erythema [Unknown]
  - Blood lactic acid increased [Unknown]
  - Speech disorder [Unknown]
  - Lip dry [Unknown]
  - Rash [Unknown]
